FAERS Safety Report 8493636-2 (Version None)
Quarter: 2012Q3

REPORT INFORMATION
  Report Type: 
  Country: None (occurrence: None)
  Receive Date: 20120706
  Receipt Date: 20120629
  Transmission Date: 20120928
  Serious: Yes (Other)
  Sender: FDA-Public Use
  Company Number: US-BAXTER-2012BAX010240

PATIENT

DRUGS (1)
  1. GAMMAGARD LIQUID [Suspect]
     Route: 058

REACTIONS (2)
  - FLUSHING [None]
  - LARYNGOSPASM [None]
